FAERS Safety Report 10147229 (Version 1)
Quarter: 2014Q2

REPORT INFORMATION
  Report Type: Spontaneous
  Country: GB (occurrence: GB)
  Receive Date: 20140501
  Receipt Date: 20140501
  Transmission Date: 20141212
  Serious: Yes (Other)
  Sender: FDA-Public Use
  Company Number: GB-TEVA-477416ISR

PATIENT
  Age: 64 Year
  Sex: Male
  Weight: 73.03 kg

DRUGS (6)
  1. AMOXICILLIN [Suspect]
     Dates: start: 20140310
  2. AMITRIPTYLINE HYDROCHLORIDE [Concomitant]
     Dates: start: 20140203, end: 20140404
  3. AMITRIPTYLINE HYDROCHLORIDE [Concomitant]
     Dates: start: 20131128, end: 20140127
  4. CALCICHEW D3 [Concomitant]
     Dates: start: 20131128, end: 20140308
  5. CAPASAL [Concomitant]
     Dates: start: 20140203, end: 20140303
  6. CARMELLOSE SODIUM [Concomitant]
     Dates: start: 20140203, end: 20140303

REACTIONS (3)
  - Syncope [Recovering/Resolving]
  - Feeling abnormal [Unknown]
  - Dizziness [Unknown]
